FAERS Safety Report 8095035-4 (Version None)
Quarter: 2012Q1

REPORT INFORMATION
  Report Type: 
  Country: None (occurrence: None)
  Receive Date: 20120131
  Receipt Date: 20120131
  Transmission Date: 20120608
  Serious: Yes (Other)
  Sender: FDA-Public Use
  Company Number: None

PATIENT
  Age: 49 Year
  Sex: Female
  Weight: 83.914 kg

DRUGS (2)
  1. PAROXETINE [Suspect]
     Indication: OBSESSIVE-COMPULSIVE DISORDER
     Dosage: 60.0 MG
     Route: 048
     Dates: start: 20070101, end: 20120130
  2. PAROXETINE [Suspect]
     Indication: ANXIETY
     Dosage: 60.0 MG
     Route: 048
     Dates: start: 20070101, end: 20120130

REACTIONS (5)
  - PRODUCT SUBSTITUTION ISSUE [None]
  - WITHDRAWAL SYNDROME [None]
  - PRODUCT QUALITY ISSUE [None]
  - NYSTAGMUS [None]
  - DYSGEUSIA [None]
